FAERS Safety Report 10049565 (Version 3)
Quarter: 2014Q3

REPORT INFORMATION
  Report Type: Spontaneous
  Country: IT (occurrence: None)
  Receive Date: 20140328
  Receipt Date: 20140728
  Transmission Date: 20150326
  Serious: Yes (Hospitalization)
  Sender: FDA-Public Use
  Company Number: 2014AP002253

PATIENT
  Age: 34 Year
  Sex: Female

DRUGS (10)
  1. HALCION [Suspect]
     Active Substance: TRIAZOLAM
     Indication: DRUG ABUSE
     Route: 048
     Dates: start: 20140220, end: 20140220
  2. HALCION [Suspect]
     Active Substance: TRIAZOLAM
     Indication: DEPRESSION
     Route: 048
     Dates: start: 20140220, end: 20140220
  3. HALCION [Suspect]
     Active Substance: TRIAZOLAM
     Indication: INTENTIONAL SELF-INJURY
     Route: 048
     Dates: start: 20140220, end: 20140220
  4. ZOLPIDEM (ZOLPIDEM) [Suspect]
     Active Substance: ZOLPIDEM TARTRATE
     Indication: INTENTIONAL SELF-INJURY
     Dosage: 100 MG, SINGLE, ORAL
     Route: 048
     Dates: start: 20140220, end: 20140220
  5. LEXOTAN [Suspect]
     Active Substance: BROMAZEPAM
     Indication: DRUG ABUSE
     Dosage: 10 ML, SINGLE, ORAL
     Route: 048
     Dates: start: 20140220, end: 20140220
  6. ZOLPIDEM (ZOLPIDEM) [Suspect]
     Active Substance: ZOLPIDEM TARTRATE
     Indication: DEPRESSION
     Dosage: 100 MG, SINGLE, ORAL
     Route: 048
     Dates: start: 20140220, end: 20140220
  7. LEXOTAN [Suspect]
     Active Substance: BROMAZEPAM
     Indication: ANXIETY
     Dosage: 10 ML, SINGLE, ORAL
     Route: 048
     Dates: start: 20140220, end: 20140220
  8. ZOLPIDEM (ZOLPIDEM) [Suspect]
     Active Substance: ZOLPIDEM TARTRATE
     Indication: DRUG ABUSE
     Dosage: 100 MG, SINGLE, ORAL
     Route: 048
     Dates: start: 20140220, end: 20140220
  9. LEXOTAN [Suspect]
     Active Substance: BROMAZEPAM
     Indication: DEPRESSION
     Dosage: 10 ML, SINGLE, ORAL
     Route: 048
     Dates: start: 20140220, end: 20140220
  10. LEXOTAN [Suspect]
     Active Substance: BROMAZEPAM
     Indication: INTENTIONAL SELF-INJURY
     Dosage: 10 ML, SINGLE, ORAL
     Route: 048
     Dates: start: 20140220, end: 20140220

REACTIONS (2)
  - Sopor [None]
  - Drug abuse [None]

NARRATIVE: CASE EVENT DATE: 20140220
